FAERS Safety Report 8594494 (Version 3)
Quarter: 2012Q4

REPORT INFORMATION
  Report Type: 
  Country: US (occurrence: US)
  Receive Date: 20120604
  Receipt Date: 20120921
  Transmission Date: 20130627
  Serious: Yes (Other)
  Sender: FDA-Public Use
  Company Number: US-ABBOTT-12P-163-0941586-00

PATIENT
  Age: 81 None
  Sex: Male
  Weight: 79 kg

DRUGS (17)
  1. ANDROGEL 1% [Suspect]
     Indication: BLOOD TESTOSTERONE DECREASED
     Dosage: 1 packet daily
     Route: 061
     Dates: start: 2004, end: 201205
  2. TESTOSTERONE [Suspect]
     Indication: BLOOD TESTOSTERONE DECREASED
     Dosage: 4 pumps per day
     Dates: start: 201205
  3. TESTOSTERONE [Suspect]
     Dosage: 4 PUMPS IN AM, 2 PUMPS IN PM
     Dates: start: 20120910
  4. ZOCOR [Concomitant]
     Indication: BLOOD CHOLESTEROL INCREASED
  5. TERAZOSIN [Concomitant]
     Indication: PROSTATOMEGALY
  6. LEVOTHYROXINE [Concomitant]
     Indication: PRODUCT USED FOR UNKNOWN INDICATION
  7. METOPROLOL [Concomitant]
     Indication: HEART RATE ABNORMAL
  8. CLARINEX [Concomitant]
     Indication: HYPERSENSITIVITY
  9. MEDICATION FOR OVERACTIVE BLADDER [Concomitant]
     Indication: HYPERTONIC BLADDER
  10. LUXIQ [Concomitant]
     Indication: PSORIASIS
     Dosage: Foam, as needed
  11. MULTIVITAMINS [Concomitant]
     Indication: PRODUCT USED FOR UNKNOWN INDICATION
  12. BABY ASPIRIN [Concomitant]
     Indication: PRODUCT USED FOR UNKNOWN INDICATION
  13. VITAMIN D [Concomitant]
     Indication: PRODUCT USED FOR UNKNOWN INDICATION
  14. CITRICAL FIBER [Concomitant]
     Indication: PRODUCT USED FOR UNKNOWN INDICATION
  15. CALCIUM WITH VITAMIN D [Concomitant]
     Indication: PRODUCT USED FOR UNKNOWN INDICATION
  16. VITAMIN B [Concomitant]
     Indication: PRODUCT USED FOR UNKNOWN INDICATION
  17. LOSARTIN [Concomitant]
     Indication: HYPERTENSION

REACTIONS (4)
  - Aortic rupture [Recovered/Resolved]
  - Pain [Recovered/Resolved]
  - Blood testosterone decreased [Recovered/Resolved]
  - Blood testosterone decreased [Not Recovered/Not Resolved]
